FAERS Safety Report 5883839-5 (Version None)
Quarter: 2008Q3

REPORT INFORMATION
  Report Type: 
  Country: None (occurrence: None)
  Receive Date: 20080915
  Receipt Date: 20080903
  Transmission Date: 20090109
  Serious: Yes (Other)
  Sender: FDA-Public Use
  Company Number: BR-ROCHE-584904

PATIENT
  Sex: Female
  Weight: 58 kg

DRUGS (7)
  1. BONIVA [Suspect]
     Indication: OSTEOPOROSIS
     Route: 048
     Dates: start: 20080901
  2. OMEPRAZOLE [Concomitant]
     Indication: GASTRIC DISORDER
  3. VYTORIN [Concomitant]
     Indication: BLOOD CHOLESTEROL ABNORMAL
  4. SELOZOK [Concomitant]
  5. CALTRATE [Concomitant]
     Indication: OSTEOPOROSIS
  6. LIVIAL [Concomitant]
     Indication: MENOPAUSE
  7. INSULIN [Concomitant]

REACTIONS (1)
  - BLOOD GLUCOSE INCREASED [None]
